FAERS Safety Report 4462362-9 (Version None)
Quarter: 2004Q3

REPORT INFORMATION
  Report Type: 
  Country: None (occurrence: None)
  Receive Date: 20040923
  Receipt Date: 20040907
  Transmission Date: 20050211
  Serious: Yes (Life-Threatening, Disabling)
  Sender: FDA-Public Use
  Company Number: WAES 0409USA00502

PATIENT
  Age: 51 Year
  Sex: Female

DRUGS (7)
  1. FOSAMAX [Suspect]
     Indication: OSTEOPOROSIS
     Dosage: SEE IMAGE
     Route: 048
     Dates: start: 20040501, end: 20040101
  2. FOSAMAX [Suspect]
     Indication: OSTEOPOROSIS
     Dosage: SEE IMAGE
     Route: 048
     Dates: start: 20040901, end: 20040901
  3. ARMOUR THYROID TABLETS [Concomitant]
  4. LASIX [Concomitant]
  5. MINITRAN [Concomitant]
  6. NORVASC [Concomitant]
  7. PROZAC [Concomitant]

REACTIONS (6)
  - BRAIN OEDEMA [None]
  - FEELING ABNORMAL [None]
  - GENERALISED OEDEMA [None]
  - HEADACHE [None]
  - PYREXIA [None]
  - SUICIDAL IDEATION [None]
